FAERS Safety Report 14515771 (Version 1)
Quarter: 2018Q1

REPORT INFORMATION
  Report Type: Spontaneous
  Country: FR (occurrence: FR)
  Receive Date: 20180211
  Receipt Date: 20180211
  Transmission Date: 20180509
  Serious: Yes (Death, Hospitalization)
  Sender: FDA-Public Use
  Company Number: FR-CONCORDIA PHARMACEUTICALS INC.-GSH201802-000533

PATIENT
  Age: 91 Year
  Sex: Male

DRUGS (13)
  1. SPASFON [Concomitant]
     Active Substance: PHLOROGLUCINOL\1,3,5-TRIMETHOXYBENZENE
  2. DIFFU K [Concomitant]
     Active Substance: POTASSIUM CHLORIDE
  3. RAMIPRIL. [Concomitant]
     Active Substance: RAMIPRIL
  4. LASILIX [Suspect]
     Active Substance: FUROSEMIDE
     Indication: HYPERTENSION
     Route: 048
  5. KAYEXALATE [Suspect]
     Active Substance: SODIUM POLYSTYRENE SULFONATE
     Indication: HYPERKALAEMIA
     Route: 048
     Dates: start: 201711
  6. BISOPROLOL [Concomitant]
     Active Substance: BISOPROLOL
  7. DICLOFENAC [Concomitant]
     Active Substance: DICLOFENAC
  8. KETOCONAZOLE. [Concomitant]
     Active Substance: KETOCONAZOLE
  9. INEXIUM [Concomitant]
     Active Substance: ESOMEPRAZOLE
  10. BLINDED THERAPY [Concomitant]
     Active Substance: INVESTIGATIONAL PRODUCT
  11. SMECTA [Concomitant]
     Active Substance: MONTMORILLONITE
  12. EFFERALGAN [Concomitant]
     Active Substance: ACETAMINOPHEN
  13. PERMIXON [Concomitant]
     Active Substance: HERBALS\SAW PALMETTO

REACTIONS (2)
  - Hypokalaemia [Recovered/Resolved]
  - Muscle spasms [Recovered/Resolved]

NARRATIVE: CASE EVENT DATE: 20171202
